FAERS Safety Report 11692623 (Version 8)
Quarter: 2018Q1

REPORT INFORMATION
  Report Type: Spontaneous
  Country: US (occurrence: US)
  Receive Date: 20151103
  Receipt Date: 20180326
  Transmission Date: 20180508
  Serious: Yes (Congenital Anomaly, Other)
  Sender: FDA-Public Use
  Company Number: PHEH2015US022305

PATIENT
  Sex: Female

DRUGS (6)
  1. ONDANSETRON HYDROCHLORIDE. [Suspect]
     Active Substance: ONDANSETRON HYDROCHLORIDE
     Indication: FOETAL EXPOSURE DURING PREGNANCY
     Dosage: MOTHER DOSE: 1 DF, AS NEEDED (PRN)
     Route: 064
  2. ONDANSETRON [Suspect]
     Active Substance: ONDANSETRON
     Indication: FOETAL EXPOSURE DURING PREGNANCY
     Dosage: MOTHER^S DOSE: 08 MG, PRN
     Route: 064
  3. ZOFRAN ODT [Suspect]
     Active Substance: ONDANSETRON HYDROCHLORIDE
     Indication: FOETAL EXPOSURE DURING PREGNANCY
     Dosage: MOTHER DOSE: 01 DF, Q4H
     Route: 064
  4. ZOFRAN [Suspect]
     Active Substance: ONDANSETRON HYDROCHLORIDE
     Indication: FOETAL EXPOSURE DURING PREGNANCY
     Dosage: MOTHER^S DOSE: 04 MG, PRN
     Route: 064
  5. ONDANSETRON [Suspect]
     Active Substance: ONDANSETRON
     Indication: FOETAL EXPOSURE DURING PREGNANCY
     Dosage: UNK
     Route: 064
  6. ONDANSETRON HYDROCHLORIDE. [Suspect]
     Active Substance: ONDANSETRON HYDROCHLORIDE
     Indication: FOETAL EXPOSURE DURING PREGNANCY
     Route: 064

REACTIONS (23)
  - Foetal exposure during pregnancy [Unknown]
  - Emotional distress [Unknown]
  - Congenital anomaly [Unknown]
  - Left atrial enlargement [Unknown]
  - Diastolic dysfunction [Unknown]
  - Hyperhidrosis [Unknown]
  - Mitral valve incompetence [Unknown]
  - Tachypnoea [Unknown]
  - Injury [Unknown]
  - Anxiety [Unknown]
  - Left ventricular enlargement [Unknown]
  - Anhedonia [Unknown]
  - Multiple congenital abnormalities [Unknown]
  - Congenital coronary artery malformation [Unknown]
  - Pain [Unknown]
  - Sickle cell anaemia [Unknown]
  - Pulmonary valve stenosis [Unknown]
  - Pericardial effusion [Unknown]
  - Heart disease congenital [Unknown]
  - Pneumonia [Unknown]
  - Left ventricular hypertrophy [Unknown]
  - Asthma [Unknown]
  - Cardiomegaly [Unknown]
